FAERS Safety Report 8121970-4 (Version None)
Quarter: 2012Q1

REPORT INFORMATION
  Report Type: 
  Country: None (occurrence: None)
  Receive Date: 20120208
  Receipt Date: 20120203
  Transmission Date: 20120608
  Serious: Yes (Death, Hospitalization)
  Sender: FDA-Public Use
  Company Number: US-ROCHE-1021274

PATIENT
  Sex: Female

DRUGS (2)
  1. ZELBORAF [Suspect]
     Indication: MALIGNANT MELANOMA
     Route: 048
     Dates: start: 20110901
  2. ZELBORAF [Suspect]
     Route: 048

REACTIONS (4)
  - MALIGNANT MELANOMA [None]
  - DERMATITIS BULLOUS [None]
  - CEREBROVASCULAR ACCIDENT [None]
  - ARTHRALGIA [None]
